FAERS Safety Report 7425195-7 (Version None)
Quarter: 2011Q2

REPORT INFORMATION
  Report Type: 
  Country: None (occurrence: None)
  Receive Date: 20110420
  Receipt Date: 20110411
  Transmission Date: 20111010
  Serious: Yes (Hospitalization)
  Sender: FDA-Public Use
  Company Number: US-JNJFOC-20110404869

PATIENT
  Sex: Female
  Weight: 58.97 kg

DRUGS (4)
  1. PRISTIQ [Concomitant]
     Indication: ANTIDEPRESSANT THERAPY
     Route: 065
  2. DETROL LA [Concomitant]
     Indication: CYSTITIS INTERSTITIAL
     Route: 048
  3. DURAGESIC [Suspect]
     Indication: CYSTITIS INTERSTITIAL
     Route: 062
  4. CLONAZEPAM [Concomitant]
     Indication: SLEEP DISORDER
     Route: 048

REACTIONS (3)
  - ULCER [None]
  - BLADDER PAIN [None]
  - ABDOMINAL PAIN UPPER [None]
